FAERS Safety Report 7958247-3 (Version None)
Quarter: 2011Q4

REPORT INFORMATION
  Report Type: 
  Country: None (occurrence: None)
  Receive Date: 20111205
  Receipt Date: 20111201
  Transmission Date: 20120403
  Serious: Yes (Hospitalization)
  Sender: FDA-Public Use
  Company Number: FR-ROCHE-1018023

PATIENT
  Age: 80 Year
  Sex: Male

DRUGS (4)
  1. POLARAMINE [Concomitant]
  2. MABTHERA [Suspect]
     Indication: MANTLE CELL LYMPHOMA RECURRENT
     Route: 042
     Dates: start: 20110623, end: 20110623
  3. ACETAMINOPHEN [Concomitant]
  4. SOLU-MEDROL [Concomitant]

REACTIONS (1)
  - SHOCK [None]
